FAERS Safety Report 6830604-8 (Version None)
Quarter: 2010Q3

REPORT INFORMATION
  Report Type: 
  Country: None (occurrence: None)
  Receive Date: 20100706
  Receipt Date: 20100624
  Transmission Date: 20110219
  Serious: No
  Sender: FDA-Public Use
  Company Number: 2010060059

PATIENT
  Age: 79 Year
  Sex: Male

DRUGS (3)
  1. ONSOLIS [Suspect]
     Dosage: BU
     Route: 002
  2. MS CONTIN [Concomitant]
  3. VICODIN [Concomitant]

REACTIONS (1)
  - INTERCEPTED DRUG DISPENSING ERROR [None]
